FAERS Safety Report 10689658 (Version 1)
Quarter: 2015Q1

REPORT INFORMATION
  Report Type: Spontaneous
  Country: US (occurrence: US)
  Receive Date: 20150105
  Receipt Date: 20150105
  Transmission Date: 20150720
  Serious: No
  Sender: FDA-Public Use
  Company Number: US-PFIZER INC-2014363559

PATIENT
  Sex: Female
  Weight: 53.61 kg

DRUGS (2)
  1. SAVELLA [Suspect]
     Active Substance: MILNACIPRAN HYDROCHLORIDE
     Dosage: 100 MG, 1X/DAY
     Route: 048
     Dates: start: 2011
  2. LYRICA [Suspect]
     Active Substance: PREGABALIN
     Indication: FIBROMYALGIA
     Dosage: 200 MG, 1X/DAY
     Dates: start: 2009

REACTIONS (6)
  - Panic attack [Recovered/Resolved]
  - Anxiety [Recovered/Resolved]
  - Night sweats [Recovered/Resolved]
  - Thinking abnormal [Recovered/Resolved]
  - Depressed mood [Recovered/Resolved]
  - Mood altered [Recovered/Resolved]

NARRATIVE: CASE EVENT DATE: 20141229
